FAERS Safety Report 16450830 (Version 2)
Quarter: 2019Q3

REPORT INFORMATION
  Report Type: Spontaneous
  Country: US (occurrence: US)
  Receive Date: 20190619
  Receipt Date: 20190702
  Transmission Date: 20191004
  Serious: Yes (Other)
  Sender: FDA-Public Use
  Company Number: US-DRREDDYS-USA/USA/19/0111092

PATIENT
  Age: 59 Year
  Sex: Male
  Weight: 78.6 kg

DRUGS (5)
  1. VANCOMYCIN [Suspect]
     Active Substance: VANCOMYCIN
     Indication: STAPHYLOCOCCAL INFECTION
     Dosage: A BATCH OF CALCIUM SULFATE STIMULAN BEADS COMPRISED OF 1 G OF VANCOMYCIN AND 2.4 G OF TOBRAMYCIN WER
  2. ADALIMUMAB [Concomitant]
     Active Substance: ADALIMUMAB
     Indication: ANKYLOSING SPONDYLITIS
  3. VANCOMYCIN [Suspect]
     Active Substance: VANCOMYCIN
  4. VANCOMYCIN [Suspect]
     Active Substance: VANCOMYCIN
     Dosage: A BATCH OF CALCIUM SULFATE STIMULAN BEADS COMPRISED OF 1 G OF VANCOMYCIN AND 2.4 G OF TOBRAMYCIN WER
  5. TOBRAMYCIN INHALATION SOLUTION [Suspect]
     Active Substance: TOBRAMYCIN
     Indication: STAPHYLOCOCCAL INFECTION
     Dosage: A BATCH OF CALCIUM SULFATE STIMULAN BEADS COMPRISED OF 1 G OF VANCOMYCIN AND 2.4 G OF TOBRAMYCIN WER

REACTIONS (3)
  - Nephropathy toxic [Recovered/Resolved]
  - Acute kidney injury [Recovered/Resolved]
  - Renal tubular necrosis [Recovered/Resolved]
